FAERS Safety Report 5783055-1 (Version None)
Quarter: 2008Q2

REPORT INFORMATION
  Report Type: 
  Country: None (occurrence: None)
  Receive Date: 20080624
  Receipt Date: 20080613
  Transmission Date: 20081010
  Serious: Yes (Hospitalization)
  Sender: FDA-Public Use
  Company Number: JP-ASTRAZENECA-2008AP04678

PATIENT
  Age: 57 Year
  Sex: Female
  Weight: 55 kg

DRUGS (9)
  1. IRESSA [Suspect]
     Indication: LUNG NEOPLASM MALIGNANT
     Route: 048
     Dates: start: 20070807, end: 20080529
  2. EXCEGRAN [Concomitant]
     Indication: CONVULSION PROPHYLAXIS
     Route: 048
     Dates: start: 20070710
  3. FAMOTIDINE [Concomitant]
     Indication: PROPHYLAXIS
     Dosage: DOSE UNKNOWN
     Route: 048
     Dates: start: 20070710, end: 20070827
  4. TROCHES(COMP.) [Concomitant]
     Indication: COUGH
     Dosage: DOSE UNKNOWN
     Route: 048
     Dates: start: 20070730, end: 20070905
  5. ASTOMIN [Concomitant]
     Indication: COUGH
     Dosage: DOSE UNKNOWN
     Route: 048
     Dates: start: 20070802, end: 20070918
  6. FAMOSTAGINE-D [Concomitant]
     Indication: PROPHYLAXIS AGAINST GASTROINTESTINAL ULCER
     Route: 048
     Dates: start: 20070828, end: 20080612
  7. PROHEPARUM [Concomitant]
     Indication: HEPATIC FUNCTION ABNORMAL
     Route: 048
     Dates: start: 20071018
  8. INTEBAN [Concomitant]
     Indication: VASCULITIS
     Dosage: OPTIMAL DOSE
     Route: 048
     Dates: start: 20080321, end: 20080528
  9. LANSOPRAZOLE [Concomitant]
     Indication: PROPHYLAXIS AGAINST GASTROINTESTINAL ULCER
     Route: 048
     Dates: start: 20080612

REACTIONS (2)
  - DEEP VEIN THROMBOSIS [None]
  - PULMONARY EMBOLISM [None]
